FAERS Safety Report 5016986-0 (Version None)
Quarter: 2006Q2

REPORT INFORMATION
  Report Type: 
  Country: None (occurrence: None)
  Receive Date: 20060526
  Receipt Date: 20060515
  Transmission Date: 20061013
  Serious: Yes (Hospitalization)
  Sender: FDA-Public Use
  Company Number: 2006BH009888

PATIENT
  Age: 60 Year
  Sex: Female

DRUGS (2)
  1. EPINEPHRINE [Suspect]
     Dosage: 0.3 ML;IV
     Route: 042
  2. DIPHENHYDRAMINE HCL [Concomitant]

REACTIONS (4)
  - CHEST PAIN [None]
  - DIZZINESS [None]
  - TUNNEL VISION [None]
  - VENTRICULAR TACHYCARDIA [None]
